FAERS Safety Report 24244096 (Version 1)
Quarter: 2024Q3

REPORT INFORMATION
  Report Type: Spontaneous
  Country: US (occurrence: None)
  Receive Date: 20240822
  Receipt Date: 20240822
  Transmission Date: 20241017
  Serious: No
  Sender: Public
  Company Number: None

PATIENT
  Age: 50 Year
  Sex: Female

DRUGS (2)
  1. GLIMEPIRIDE [Suspect]
     Active Substance: GLIMEPIRIDE
  2. INSULIN NOS [Suspect]
     Active Substance: INSULIN NOS

REACTIONS (4)
  - Underdose [None]
  - Wrong drug [None]
  - Wrong dose [None]
  - Product prescribing issue [None]
